FAERS Safety Report 5850268-X (Version None)
Quarter: 2008Q3

REPORT INFORMATION
  Report Type: 
  Country: None (occurrence: None)
  Receive Date: 20080819
  Receipt Date: 20080812
  Transmission Date: 20090109
  Serious: Yes (Other)
  Sender: FDA-Public Use
  Company Number: PHHY2008CA15356

PATIENT
  Sex: Male

DRUGS (3)
  1. TRILEPTAL [Suspect]
     Indication: EPILEPSY
     Dosage: 75 MG, BID
     Route: 048
     Dates: start: 20080710, end: 20080722
  2. ENALAPRIL MALEATE [Concomitant]
  3. VALPROIC ACID [Concomitant]

REACTIONS (3)
  - EYE PAIN [None]
  - EYE SWELLING [None]
  - PERIORBITAL OEDEMA [None]
